FAERS Safety Report 12277577 (Version 2)
Quarter: 2016Q2

REPORT INFORMATION
  Report Type: Spontaneous
  Country: US (occurrence: US)
  Receive Date: 20160418
  Receipt Date: 20160425
  Transmission Date: 20160815
  Serious: Yes (Other)
  Sender: FDA-Public Use
  Company Number: US-TEVA-651771USA

PATIENT
  Age: 32 Year
  Sex: Male

DRUGS (1)
  1. ZECUITY [Suspect]
     Active Substance: SUMATRIPTAN SUCCINATE
     Route: 062
     Dates: start: 20160408, end: 20160408

REACTIONS (6)
  - Chemical burn of skin [Unknown]
  - Application site pain [Unknown]
  - Application site pruritus [Recovered/Resolved]
  - Application site erythema [Unknown]
  - Skin sensitisation [Unknown]
  - Application site exfoliation [Recovered/Resolved]

NARRATIVE: CASE EVENT DATE: 20160408
